FAERS Safety Report 13363468 (Version 1)
Quarter: 2017Q1

REPORT INFORMATION
  Report Type: Spontaneous
  Country: US (occurrence: US)
  Receive Date: 20170323
  Receipt Date: 20170323
  Transmission Date: 20170429
  Serious: Yes (Other)
  Sender: FDA-Public Use
  Company Number: US-NOVOPROD-536493

PATIENT
  Age: 65 Year
  Sex: Female
  Weight: 64.85 kg

DRUGS (1)
  1. LEVEMIR [Suspect]
     Active Substance: INSULIN DETEMIR
     Indication: TYPE 2 DIABETES MELLITUS
     Dosage: 20 U, QD
     Route: 058
     Dates: start: 2011

REACTIONS (2)
  - Osteoporosis [Not Recovered/Not Resolved]
  - Deafness [Recovered/Resolved]

NARRATIVE: CASE EVENT DATE: 2016
